FAERS Safety Report 7875556-7 (Version None)
Quarter: 2011Q4

REPORT INFORMATION
  Report Type: 
  Country: None (occurrence: None)
  Receive Date: 20111031
  Receipt Date: 20111027
  Transmission Date: 20120403
  Serious: No
  Sender: FDA-Public Use
  Company Number: US-TEVA-306549USA

PATIENT
  Sex: Female
  Weight: 92.616 kg

DRUGS (2)
  1. BIRTH CONTROL PILL [Concomitant]
     Indication: CONTRACEPTION
  2. PLAN B ONE-STEP [Suspect]
     Indication: POST COITAL CONTRACEPTION
     Dosage: 1.5 MILLIGRAM;
     Route: 048
     Dates: start: 20111019, end: 20111019

REACTIONS (1)
  - MENSTRUATION IRREGULAR [None]
